FAERS Safety Report 21074715 (Version 2)
Quarter: 2022Q3

REPORT INFORMATION
  Report Type: Spontaneous
  Country: FR (occurrence: FR)
  Receive Date: 20220713
  Receipt Date: 20220921
  Transmission Date: 20221027
  Serious: Yes (Other)
  Sender: FDA-Public Use
  Company Number: FR-NOVARTISPH-NVSC2022FR157839

PATIENT
  Age: 75 Year
  Sex: Female
  Weight: 85 kg

DRUGS (9)
  1. TEGRETOL [Suspect]
     Active Substance: CARBAMAZEPINE
     Indication: Epilepsy
     Dosage: UNK, 400 TWICE A DAY SINCE 30 YEARS
     Route: 065
  2. ELIQUIS [Suspect]
     Active Substance: APIXABAN
     Indication: Deep vein thrombosis
     Dosage: 10 MG (0.5 DAYS, 2 TABLETS OF 5MG MORNING AND EVENING)
     Route: 048
     Dates: start: 20220627
  3. ELIQUIS [Suspect]
     Active Substance: APIXABAN
     Indication: Phlebitis
     Dosage: 5 MG (0.5 DAYS)
     Route: 048
     Dates: start: 20220625, end: 20220626
  4. ELIQUIS [Suspect]
     Active Substance: APIXABAN
     Dosage: 10 MG (0.5 DAYS, 2 TABLETS OF 5 MG MORNING AND EVENING)
     Route: 048
     Dates: start: 20220623, end: 20220624
  5. ELIQUIS [Suspect]
     Active Substance: APIXABAN
     Dosage: 10 MG, 2 TABLETS OF 5 MG MORNING AND EVENING
     Route: 048
     Dates: start: 20220620
  6. ELIQUIS [Suspect]
     Active Substance: APIXABAN
     Dosage: 5 MG (0.25 DAY)
     Route: 048
     Dates: start: 20220616, end: 20220617
  7. ELIQUIS [Suspect]
     Active Substance: APIXABAN
     Dosage: 5 MG (0.5 DAY)
     Route: 048
     Dates: start: 20220618, end: 20220619
  8. LOXEN [Concomitant]
     Indication: Product used for unknown indication
     Dosage: UNK
     Route: 065
  9. VIMPAT [Concomitant]
     Active Substance: LACOSAMIDE
     Indication: Epilepsy
     Dosage: 100 MG, QD SINCE 2 YEARS
     Route: 065

REACTIONS (5)
  - Seizure [Unknown]
  - Seizure [Recovered/Resolved]
  - Anticoagulation drug level decreased [Unknown]
  - Off label use [Unknown]
  - Intentional product use issue [Unknown]

NARRATIVE: CASE EVENT DATE: 20220616
